FAERS Safety Report 7265091-1 (Version None)
Quarter: 2011Q1

REPORT INFORMATION
  Report Type: 
  Country: None (occurrence: None)
  Receive Date: 20110131
  Receipt Date: 20110119
  Transmission Date: 20110831
  Serious: Yes (Other)
  Sender: FDA-Public Use
  Company Number: ZA-SANOFI-AVENTIS-2011SA003745

PATIENT
  Sex: Male

DRUGS (3)
  1. MEFLIAM [Suspect]
     Indication: MALARIA PROPHYLAXIS
     Route: 065
  2. KETEK [Suspect]
     Indication: PNEUMONIA
     Route: 048
  3. PURICOS [Concomitant]
     Indication: GOUT
     Route: 065

REACTIONS (4)
  - MALAISE [None]
  - MALARIA [None]
  - DRUG INTERACTION [None]
  - PNEUMONIA [None]
